FAERS Safety Report 6722106-4 (Version None)
Quarter: 2010Q2

REPORT INFORMATION
  Report Type: 
  Country: None (occurrence: None)
  Receive Date: 20100512
  Receipt Date: 20100507
  Transmission Date: 20101027
  Serious: Yes (Other)
  Sender: FDA-Public Use
  Company Number: US-ABBOTT-10P-163-0643069-00

PATIENT
  Age: 29 Year
  Sex: Male

DRUGS (2)
  1. DEPAKOTE ER [Suspect]
     Indication: CONVULSION
     Dosage: INCREASED TO AN UNKNOWN DOSE
  2. LEXAPRO [Suspect]
     Indication: DEPRESSION
     Route: 048
     Dates: start: 20100423, end: 20100427

REACTIONS (3)
  - CONDITION AGGRAVATED [None]
  - CONVULSION [None]
  - EUPHORIC MOOD [None]
